FAERS Safety Report 8554351-X (Version None)
Quarter: 2012Q3

REPORT INFORMATION
  Report Type: 
  Country: None (occurrence: None)
  Receive Date: 20120731
  Receipt Date: 20120723
  Transmission Date: 20120928
  Serious: Yes (Death, Hospitalization)
  Sender: FDA-Public Use
  Company Number: US-009507513-1207USA009963

PATIENT

DRUGS (6)
  1. LASIX [Suspect]
     Dosage: UNK
  2. TEMERIT [Concomitant]
  3. ZOCOR [Interacting]
     Dosage: UNK
     Route: 048
  4. CANDESARTAN CILEXETIL [Interacting]
     Dosage: UNK
     Route: 048
  5. ALLOPURINOL [Concomitant]
     Dosage: UNK
     Route: 048
  6. DANAZOL [Interacting]
     Dosage: UNK
     Route: 048

REACTIONS (3)
  - RHABDOMYOLYSIS [None]
  - DRUG INTERACTION [None]
  - RENAL FAILURE ACUTE [None]
